FAERS Safety Report 11722950 (Version 1)
Quarter: 2015Q4

REPORT INFORMATION
  Report Type: Report from Study
  Country: US (occurrence: US)
  Receive Date: 20151111
  Receipt Date: 20151111
  Transmission Date: 20160304
  Serious: Yes (Hospitalization)
  Sender: FDA-Public Use
  Company Number: US-BIOGENIDEC-2015BI148683

PATIENT
  Age: 67 Year
  Sex: Male

DRUGS (12)
  1. TECFIDERA [Suspect]
     Active Substance: DIMETHYL FUMARATE
     Indication: MULTIPLE SCLEROSIS
     Route: 048
     Dates: start: 20150129
  2. CALCIUM 600+D [Concomitant]
     Active Substance: CALCIUM\VITAMIN D
  3. TMP DS [Concomitant]
  4. SIMVASTATIN. [Concomitant]
     Active Substance: SIMVASTATIN
  5. IRON [Concomitant]
     Active Substance: IRON
  6. OMEPRAZOLE. [Concomitant]
     Active Substance: OMEPRAZOLE
  7. ASPIRIN. [Concomitant]
     Active Substance: ASPIRIN
  8. FOLIC ACID. [Concomitant]
     Active Substance: FOLIC ACID
  9. FISH OIL [Concomitant]
     Active Substance: FISH OIL
  10. SULFAMETHOXAZOLE [Concomitant]
     Active Substance: SULFAMETHOXAZOLE
  11. LOSARTAN POTASSIUM. [Concomitant]
     Active Substance: LOSARTAN POTASSIUM
  12. BACLOFEN. [Concomitant]
     Active Substance: BACLOFEN

REACTIONS (1)
  - Mobility decreased [Unknown]

NARRATIVE: CASE EVENT DATE: 201510
